FAERS Safety Report 7866370-7 (Version None)
Quarter: 2011Q4

REPORT INFORMATION
  Report Type: 
  Country: None (occurrence: None)
  Receive Date: 20111028
  Receipt Date: 20110606
  Transmission Date: 20120403
  Serious: No
  Sender: FDA-Public Use
  Company Number: US-GLAXOSMITHKLINE-A0930401A

PATIENT
  Age: 80 Year
  Sex: Female

DRUGS (6)
  1. THYROID MEDICATION [Concomitant]
  2. ADVAIR DISKUS 100/50 [Suspect]
     Indication: CHRONIC OBSTRUCTIVE PULMONARY DISEASE
     Dosage: 1PUFF TWICE PER DAY
     Route: 055
     Dates: start: 20110528
  3. COMBIVENT [Concomitant]
  4. SPIRIVA [Concomitant]
  5. BLOOD PRESSURE MEDICATION [Concomitant]
     Indication: HYPERTENSION
  6. ACID REFLUX MED. [Concomitant]

REACTIONS (3)
  - DYSPHONIA [None]
  - DRY THROAT [None]
  - COUGH [None]
